FAERS Safety Report 6233866-3 (Version None)
Quarter: 2009Q2

REPORT INFORMATION
  Report Type: 
  Country: None (occurrence: None)
  Receive Date: 20090618
  Receipt Date: 20090608
  Transmission Date: 20091009
  Serious: Yes (Death, Hospitalization)
  Sender: FDA-Public Use
  Company Number: JP-BRISTOL-MYERS SQUIBB COMPANY-14609291

PATIENT
  Age: 76 Year
  Sex: Female

DRUGS (15)
  1. SPRYCEL [Suspect]
     Indication: CHRONIC MYELOID LEUKAEMIA
     Dosage: 20-21APR09:2DAY:70MG BID ALSO 280 MG/DAY 22-27APR09.6DAY(REDUCED TO 140 MG QD)
     Route: 048
     Dates: start: 20090420, end: 20090427
  2. IMATINIB MESILATE [Concomitant]
     Dosage: NOV03-DEC03,19SEP-17OCT08,23JAN09-20FEB09,06MAR-19APR09.
     Dates: start: 20031101, end: 20090419
  3. BROTIZOLAM [Concomitant]
     Dates: end: 20090427
  4. LEVOTHYROXINE SODIUM [Concomitant]
     Dosage: LEVOTHYROXINE SODIUM HYDRATE
     Dates: end: 20090427
  5. EPINASTINE HCL [Concomitant]
     Dates: end: 20090427
  6. SUCRALFATE [Concomitant]
     Dosage: SUCRALFATE HYDRATE
     Dates: start: 20090423, end: 20090427
  7. ANTIBIOTICS [Concomitant]
     Dosage: ANTIBIOTICS -RESISTANT LACTIC ACID BACTERIAE
     Dates: start: 20090421, end: 20090427
  8. OMEPRAZOLE [Concomitant]
     Dosage: OMEPRAZOLE SODIUM :UNK- 23APR09. 24APR09-27APR09.
     Dates: end: 20090427
  9. MEROPENEM [Concomitant]
     Dosage: MEROPENEM HYDRATE
     Dates: end: 20090428
  10. MICAFUNGIN SODIUM [Concomitant]
     Dates: end: 20090427
  11. AMINOPHYLLINE [Concomitant]
     Dosage: AMINOPHYLLINE HYDRATE
     Dates: end: 20090428
  12. METOCLOPRAMIDE HCL [Concomitant]
     Dates: end: 20090428
  13. FUROSEMIDE [Concomitant]
     Dates: end: 20090428
  14. VANCOMYCIN HCL [Concomitant]
     Dates: start: 20090424, end: 20090428
  15. METHYLPREDNISOLONE SODIUM SUCCINATE [Concomitant]
     Dates: start: 20090428, end: 20090428

REACTIONS (8)
  - ACUTE RESPIRATORY DISTRESS SYNDROME [None]
  - FIBRIN D DIMER INCREASED [None]
  - FIBRIN DEGRADATION PRODUCTS INCREASED [None]
  - FIBRIN INCREASED [None]
  - MALIGNANT NEOPLASM PROGRESSION [None]
  - PLATELET COUNT DECREASED [None]
  - PNEUMONIA [None]
  - PULMONARY HAEMORRHAGE [None]
